FAERS Safety Report 5677071-8 (Version None)
Quarter: 2008Q1

REPORT INFORMATION
  Report Type: 
  Country: None (occurrence: None)
  Receive Date: 20080324
  Receipt Date: 20080312
  Transmission Date: 20080703
  Serious: Yes (Other)
  Sender: FDA-Public Use
  Company Number: IT-WYE-H03172108

PATIENT
  Sex: Male

DRUGS (4)
  1. CORDARONE [Suspect]
     Indication: CARDIAC DISORDER
     Route: 048
     Dates: start: 20070101
  2. PANTECTA [Concomitant]
     Indication: GASTRITIS
     Dosage: UNSPECIFIED
     Route: 048
  3. MEDROL [Concomitant]
     Indication: DERMATITIS BULLOUS
     Dosage: UNSPECIFIED
     Route: 048
  4. COUMADIN [Concomitant]
     Indication: THROMBOSIS PROPHYLAXIS
     Dosage: UNSPECIFIED
     Route: 048

REACTIONS (4)
  - ASTHENIA [None]
  - ELECTROCARDIOGRAM QT PROLONGED [None]
  - ELECTROCARDIOGRAM REPOLARISATION ABNORMALITY [None]
  - GAIT DISTURBANCE [None]
